FAERS Safety Report 9331909 (Version 1)
Quarter: 2013Q2

REPORT INFORMATION
  Report Type: Spontaneous
  Country: GB (occurrence: GB)
  Receive Date: 20130605
  Receipt Date: 20130605
  Transmission Date: 20140414
  Serious: Yes (Congenital Anomaly)
  Sender: FDA-Public Use
  Company Number: GB-BAYER-2013-068726

PATIENT
  Sex: 0

DRUGS (3)
  1. PROGYNOVA [Suspect]
     Indication: IN VITRO FERTILISATION
     Dosage: 2 MG, TID
     Route: 064
     Dates: start: 20120730, end: 20121026
  2. ACETYLSALICYLIC ACID({=100 MG) [Suspect]
     Indication: THROMBOSIS PROPHYLAXIS
     Dosage: 75 MG, QD
     Route: 064
     Dates: start: 20120720, end: 20121026
  3. PROGESTERONE [Suspect]
     Indication: IN VITRO FERTILISATION
     Dosage: 400 MG, TID
     Route: 064
     Dates: start: 20120730, end: 20121030

REACTIONS (2)
  - Cleft lip and palate [Unknown]
  - Maternal drugs affecting foetus [None]
